FAERS Safety Report 5334838-3 (Version None)
Quarter: 2007Q2

REPORT INFORMATION
  Report Type: 
  Country: None (occurrence: None)
  Receive Date: 20070525
  Receipt Date: 20070514
  Transmission Date: 20071010
  Serious: Yes (Other)
  Sender: FDA-Public Use
  Company Number: CN-ROCHE-497770

PATIENT
  Age: 50 Year
  Sex: Female

DRUGS (3)
  1. PEGASYS [Suspect]
     Indication: HEPATITIS C
     Route: 058
     Dates: start: 20070416, end: 20070507
  2. RIBAVIRIN [Concomitant]
     Indication: HEPATITIS C
     Dates: end: 20070507
  3. UNSPECIFIED DRUG [Concomitant]
     Indication: HEPATITIS C
     Route: 042
     Dates: end: 20070507

REACTIONS (1)
  - ASTHMA [None]
